FAERS Safety Report 21888393 (Version 1)
Quarter: 2023Q1

REPORT INFORMATION
  Report Type: Spontaneous
  Country: US (occurrence: None)
  Receive Date: 20230120
  Receipt Date: 20230120
  Transmission Date: 20230417
  Serious: No
  Sender: FDA-Public Use
  Company Number: 2023A004650

PATIENT
  Sex: Female
  Weight: 89.4 kg

DRUGS (5)
  1. FARXIGA [Suspect]
     Active Substance: DAPAGLIFLOZIN PROPANEDIOL
     Indication: Diabetes mellitus
     Route: 048
     Dates: start: 20220901
  2. ATENOLOL [Concomitant]
     Active Substance: ATENOLOL
  3. FEMARA [Concomitant]
     Active Substance: LETROZOLE
  4. SYNTHROID [Concomitant]
     Active Substance: LEVOTHYROXINE SODIUM
  5. PRALUENT [Concomitant]
     Active Substance: ALIROCUMAB

REACTIONS (2)
  - Alopecia [Unknown]
  - Diarrhoea [Unknown]
